FAERS Safety Report 16864088 (Version 1)
Quarter: 2019Q3

REPORT INFORMATION
  Report Type: Spontaneous
  Country: BR (occurrence: BR)
  Receive Date: 20190927
  Receipt Date: 20190927
  Transmission Date: 20191005
  Serious: Yes (Other)
  Sender: FDA-Public Use
  Company Number: BR-009507513-1909BRA008747

PATIENT
  Age: 20 Year
  Sex: Female
  Weight: 77 kg

DRUGS (1)
  1. IMPLANON [Suspect]
     Active Substance: ETONOGESTREL
     Indication: MENSTRUAL CYCLE MANAGEMENT
     Dosage: 1 IMPLANT IN LEFT ARM
     Route: 059
     Dates: start: 20130408

REACTIONS (10)
  - Amenorrhoea [Recovered/Resolved]
  - Therapeutic response unexpected [Unknown]
  - Wisdom teeth removal [Unknown]
  - Complication associated with device [Not Recovered/Not Resolved]
  - Tongue paralysis [Unknown]
  - Complication of device removal [Not Recovered/Not Resolved]
  - Product use in unapproved indication [Unknown]
  - Menstruation normal [Unknown]
  - Incorrect product administration duration [Unknown]
  - Peripheral nerve infection [Unknown]

NARRATIVE: CASE EVENT DATE: 20130408
